FAERS Safety Report 8287188-X (Version None)
Quarter: 2012Q2

REPORT INFORMATION
  Report Type: 
  Country: None (occurrence: None)
  Receive Date: 20120416
  Receipt Date: 20120404
  Transmission Date: 20120825
  Serious: Yes (Hospitalization)
  Sender: FDA-Public Use
  Company Number: CN-TEVA-322032ISR

PATIENT
  Sex: Male
  Weight: 74.5 kg

DRUGS (15)
  1. NEUPOGEN [Concomitant]
     Indication: NEUTROPENIA
     Route: 058
     Dates: start: 20110802, end: 20110802
  2. NEUPOGEN [Concomitant]
     Indication: LEUKOPENIA
  3. COMPOUND KETOACID [Concomitant]
     Indication: RENAL FAILURE ACUTE
  4. HEMATOCRIT [Concomitant]
     Indication: ANAEMIA
     Dates: start: 20110702, end: 20110702
  5. DEXAMETHASONE [Suspect]
     Indication: MULTIPLE MYELOMA
     Route: 048
     Dates: start: 20110121
  6. CHINESE TRADITIONAL DRUG [Concomitant]
     Indication: RENAL FAILURE ACUTE
     Dosage: 60 GRAM;
     Route: 048
     Dates: start: 20110401, end: 20110502
  7. LENALIDOMIDE [Suspect]
     Indication: MULTIPLE MYELOMA
     Route: 048
     Dates: start: 20110121
  8. NIFEDIPINE [Concomitant]
     Indication: HYPERTENSION
     Route: 048
     Dates: start: 19800101
  9. ASPIRIN [Concomitant]
     Indication: THROMBOSIS PROPHYLAXIS
     Route: 048
     Dates: start: 20110121
  10. EPOGEN [Concomitant]
     Indication: ANAEMIA
     Route: 058
  11. SODIUM CHLORIDE [Concomitant]
     Indication: HYPONATRAEMIA
     Route: 042
     Dates: start: 20110202, end: 20110802
  12. ISOSORBIDE MONONITRATE [Concomitant]
     Indication: CORONARY ARTERY DISEASE
     Route: 048
     Dates: start: 20080101
  13. POTASSIUM CHLORIDE [Concomitant]
     Indication: HYPOKALAEMIA
     Dosage: 900 MILLIGRAM;
     Route: 048
     Dates: start: 20110119, end: 20111202
  14. POTASSIUM CHLORIDE [Concomitant]
     Route: 042
     Dates: start: 20110202, end: 20110802
  15. CALCIUM GLUCONATE [Concomitant]
     Indication: HYPOCALCAEMIA
     Route: 042
     Dates: start: 20110702, end: 20110702

REACTIONS (4)
  - NAUSEA [None]
  - CONSTIPATION [None]
  - VOMITING [None]
  - DECREASED APPETITE [None]
